FAERS Safety Report 9119225 (Version 3)
Quarter: 2013Q1

REPORT INFORMATION
  Report Type: Spontaneous
  Country: JP (occurrence: None)
  Receive Date: 20130130
  Receipt Date: 20130215
  Transmission Date: 20140127
  Serious: Yes (Hospitalization)
  Sender: FDA-Public Use
  Company Number: JP-2013-10132

PATIENT
  Age: 41 Year
  Sex: Female
  Weight: 73 kg

DRUGS (5)
  1. TOLVAPTAN [Suspect]
     Indication: CONGENITAL CYSTIC KIDNEY DISEASE
     Route: 048
     Dates: start: 20120117, end: 20120122
  2. TOLVAPTAN [Suspect]
     Route: 048
     Dates: start: 20120117, end: 20120122
  3. TOLVAPTAN [Suspect]
     Route: 048
     Dates: start: 20120117, end: 20120122
  4. CILNIDIPINE [Suspect]
     Indication: HYPERTENSION
     Route: 048
     Dates: start: 20111114
  5. LOSARTAN POTASSIUM [Suspect]
     Indication: HYPERTENSION
     Route: 048
     Dates: start: 20111007

REACTIONS (3)
  - Subarachnoid haemorrhage [None]
  - Drug intolerance [None]
  - Aneurysm [None]
